FAERS Safety Report 17212473 (Version 2)
Quarter: 2020Q1

REPORT INFORMATION
  Report Type: Report from Study
  Country: US (occurrence: US)
  Receive Date: 20191230
  Receipt Date: 20200101
  Transmission Date: 20200409
  Serious: Yes (Death)
  Sender: FDA-Public Use
  Company Number: US-ROCHE-2422660

PATIENT
  Sex: Female

DRUGS (9)
  1. TYLENOL [Concomitant]
     Active Substance: ACETAMINOPHEN
     Dosage: ONGOING:YES
     Route: 065
  2. CHOLECALCIFEROL [Concomitant]
     Active Substance: CHOLECALCIFEROL
     Dosage: ONGOING:YES
     Route: 065
  3. OMEGA-3 FATTY ACIDS [Concomitant]
     Active Substance: OMEGA-3 FATTY ACIDS
     Dosage: ONGOING:YES
     Route: 065
  4. KADCYLA [Suspect]
     Active Substance: ADO-TRASTUZUMAB EMTANSINE
     Route: 042
  5. KADCYLA [Suspect]
     Active Substance: ADO-TRASTUZUMAB EMTANSINE
     Indication: BREAST CANCER FEMALE
     Dosage: SUBSEQUENT DOSES OF TRASTUZUMAB EMTANSINE 163.8 MG WERE RECEIVED ON 20/AUG/2018, 10/SEP/2018, 03/OCT
     Route: 042
  6. NOLVADEX [Concomitant]
     Active Substance: TAMOXIFEN CITRATE
     Dosage: ONGOING:YES
     Route: 065
  7. COENZYME Q10 [Concomitant]
     Active Substance: UBIDECARENONE
  8. MAGNESIUM OXIDE. [Concomitant]
     Active Substance: MAGNESIUM OXIDE
     Dosage: ONGOING:YES
     Route: 065
  9. IBRANCE [Concomitant]
     Active Substance: PALBOCICLIB
     Dosage: ONGOING:YES
     Route: 065

REACTIONS (1)
  - Death [Fatal]
